FAERS Safety Report 22373067 (Version 1)
Quarter: 2023Q2

REPORT INFORMATION
  Report Type: Spontaneous
  Country: GB (occurrence: GB)
  Receive Date: 20230526
  Receipt Date: 20230526
  Transmission Date: 20230722
  Serious: Yes (Other)
  Sender: FDA-Public Use
  Company Number: GB-002147023-NVSC2023GB115251

PATIENT
  Age: 33 Year
  Sex: Female

DRUGS (8)
  1. CISPLATIN [Suspect]
     Active Substance: CISPLATIN
     Indication: Choriocarcinoma
     Dosage: LOW DOSE EP: 20 MG/M2 ON DAYS 1 AND 2 (2 CYCLES)
     Route: 065
  2. CISPLATIN [Suspect]
     Active Substance: CISPLATIN
     Dosage: EP-EMA (CNS): 75 MG/M2 ON DAY 1 (8 CYCLES)
     Route: 065
  3. METHOTREXATE [Suspect]
     Active Substance: METHOTREXATE
     Indication: Choriocarcinoma
     Dosage: EP-EMA (CNS): HIGHER DOSE OF 1000 MG/M2 ON DAY 8 (8 CYCLES)
     Route: 065
  4. METHOTREXATE [Suspect]
     Active Substance: METHOTREXATE
     Dosage: 12.5 MG, CYCLIC, EVERY 2-WEEKS DURING THE EP WEEK (6)
     Route: 037
  5. ETOPOSIDE [Suspect]
     Active Substance: ETOPOSIDE
     Indication: Choriocarcinoma
     Dosage: LOW DOSE EP: 100 MG/M2 ON DAYS 1 AND 2 (2 CYCLES)
     Route: 065
  6. ETOPOSIDE [Suspect]
     Active Substance: ETOPOSIDE
     Dosage: EP-EMA (CNS): 150 MG/M2 ON DAY 1 (8 CYCLES)
     Route: 065
  7. ETOPOSIDE [Suspect]
     Active Substance: ETOPOSIDE
     Dosage: EP-EMA (CNS): 100 MG/M2 ON DAY 8 (8 CYCLES)
     Route: 065
  8. DACTINOMYCIN [Suspect]
     Active Substance: DACTINOMYCIN
     Indication: Choriocarcinoma
     Dosage: EP-EMA (CNS): 0.5 MG ON DAY 8 (8 CYCLES)
     Route: 065

REACTIONS (2)
  - Toxicity to various agents [Unknown]
  - Product use in unapproved indication [Unknown]
